FAERS Safety Report 23218044 (Version 1)
Quarter: 2023Q4

REPORT INFORMATION
  Report Type: Spontaneous
  Country: US (occurrence: None)
  Receive Date: 20231121
  Receipt Date: 20231121
  Transmission Date: 20240109
  Serious: Yes (Hospitalization)
  Sender: FDA-Public Use
  Company Number: None

PATIENT
  Age: 58 Year
  Sex: Female

DRUGS (1)
  1. METHOTREXATE [Suspect]
     Active Substance: METHOTREXATE
     Dosage: FREQUENCY : WEEKLY;?

REACTIONS (4)
  - Hypersensitivity [None]
  - Nervous system disorder [None]
  - Gait disturbance [None]
  - Speech disorder [None]

NARRATIVE: CASE EVENT DATE: 20230831
